FAERS Safety Report 21438250 (Version 2)
Quarter: 2022Q4

REPORT INFORMATION
  Report Type: Spontaneous
  Country: GB (occurrence: GB)
  Receive Date: 20221011
  Receipt Date: 20221020
  Transmission Date: 20230113
  Serious: Yes (Hospitalization, Other)
  Sender: FDA-Public Use
  Company Number: GB-MLMSERVICE-20220923-3807371-1

PATIENT
  Age: 21 Year
  Sex: Female

DRUGS (5)
  1. SERTRALINE [Suspect]
     Active Substance: SERTRALINE HYDROCHLORIDE
     Indication: Catatonia
     Dosage: 50 MILLIGRAM
     Route: 065
  2. SERTRALINE [Suspect]
     Active Substance: SERTRALINE HYDROCHLORIDE
     Dosage: 100 MILLIGRAM, ONCE A DAY
     Route: 065
  3. LORAZEPAM [Suspect]
     Active Substance: LORAZEPAM
     Indication: Catatonia
     Dosage: 16 MILLIGRAM, ONCE A DAY, TOTAL DAILY DOSE OF 16MG IN DIVIDED DOSES
     Route: 048
  4. LORAZEPAM [Suspect]
     Active Substance: LORAZEPAM
     Dosage: UNK, LORAZEPAM WAS TITRATED SLOWLY OVER 10 MONTHS TO A TOTAL DAILY DOSE OF 16MG
     Route: 048
  5. DIAZEPAM [Concomitant]
     Active Substance: DIAZEPAM
     Indication: Catatonia
     Dosage: 50 MILLIGRAM,3WEEKS
     Route: 065

REACTIONS (3)
  - Generalised tonic-clonic seizure [Recovered/Resolved]
  - Drug withdrawal convulsions [Recovered/Resolved]
  - Off label use [Recovered/Resolved]
